FAERS Safety Report 21401160 (Version 2)
Quarter: 2022Q4

REPORT INFORMATION
  Report Type: Spontaneous
  Country: NL (occurrence: NL)
  Receive Date: 20221003
  Receipt Date: 20221029
  Transmission Date: 20230113
  Serious: Yes (Other)
  Sender: FDA-Public Use
  Company Number: None

PATIENT
  Sex: Female
  Weight: 37 kg

DRUGS (1)
  1. CONCERTA [Suspect]
     Active Substance: METHYLPHENIDATE HYDROCHLORIDE
     Indication: Behaviour disorder
     Dosage: OM 8:00 7,5 MG, OM 12:00 5 MG
     Route: 065
     Dates: start: 20220826

REACTIONS (4)
  - Menstrual disorder [Recovered/Resolved]
  - Precocious puberty [Unknown]
  - Hyperhidrosis [Recovering/Resolving]
  - Gynaecomastia [Recovering/Resolving]
